FAERS Safety Report 14980434 (Version 1)
Quarter: 2018Q2

REPORT INFORMATION
  Report Type: Spontaneous
  Country: ES (occurrence: ES)
  Receive Date: 20180606
  Receipt Date: 20180606
  Transmission Date: 20180711
  Serious: Yes (Hospitalization, Other)
  Sender: FDA-Public Use
  Company Number: PHHY2018ES015451

PATIENT
  Age: 69 Year
  Sex: Male
  Weight: 82.2 kg

DRUGS (3)
  1. MYFORTIC [Suspect]
     Active Substance: MYCOPHENOLATE SODIUM
     Indication: RENAL TRANSPLANT
     Dosage: 720 MG, QD
     Route: 065
     Dates: start: 20170628
  2. ENVARSUS XR [Suspect]
     Active Substance: TACROLIMUS
     Dosage: 4 UNK, QD
     Route: 048
     Dates: start: 20170702
  3. ENVARSUS XR [Suspect]
     Active Substance: TACROLIMUS
     Indication: RENAL TRANSPLANT
     Dosage: 2.5 UNK, QD
     Route: 048
     Dates: start: 20170628, end: 20170701

REACTIONS (2)
  - Gastroenteritis [Recovered/Resolved]
  - Atrial fibrillation [Not Recovered/Not Resolved]

NARRATIVE: CASE EVENT DATE: 20170803
